FAERS Safety Report 15657293 (Version 1)
Quarter: 2018Q4

REPORT INFORMATION
  Report Type: Spontaneous
  Country: US (occurrence: US)
  Receive Date: 20181126
  Receipt Date: 20181126
  Transmission Date: 20190205
  Serious: Yes (Other)
  Sender: FDA-Public Use
  Company Number: US-SAKK-2018SA178935AA

PATIENT
  Age: 75 Year
  Sex: Male

DRUGS (1)
  1. APIDRA SOLOSTAR [Suspect]
     Active Substance: INSULIN GLULISINE
     Indication: DIABETES MELLITUS
     Dosage: 20 UNITS BEFORE BREAKFAST AND 40 UNITS BEFORE DINNER
     Route: 051

REACTIONS (2)
  - Dementia [Unknown]
  - Device leakage [Unknown]
